FAERS Safety Report 8401593-X (Version None)
Quarter: 2012Q2

REPORT INFORMATION
  Report Type: 
  Country: None (occurrence: None)
  Receive Date: 20120601
  Receipt Date: 20120522
  Transmission Date: 20120825
  Serious: Yes (Death, Hospitalization, Other)
  Sender: FDA-Public Use
  Company Number: US-JNJFOC-20120517424

PATIENT

DRUGS (1)
  1. FENTANYL-100 [Suspect]
     Indication: PRODUCT USED FOR UNKNOWN INDICATION
     Route: 048

REACTIONS (28)
  - RESPIRATORY DEPRESSION [None]
  - TACHYCARDIA [None]
  - HYPERTENSION [None]
  - SOMNOLENCE [None]
  - AGITATION [None]
  - DYSPNOEA [None]
  - VOMITING [None]
  - BLOOD CREATINE PHOSPHOKINASE INCREASED [None]
  - CHEST X-RAY ABNORMAL [None]
  - CYANOSIS [None]
  - ELECTROLYTE IMBALANCE [None]
  - HYPOTENSION [None]
  - COMPLETED SUICIDE [None]
  - DIZZINESS [None]
  - PALLOR [None]
  - HYPERGLYCAEMIA [None]
  - TOXICITY TO VARIOUS AGENTS [None]
  - LETHARGY [None]
  - COMA [None]
  - DRUG ABUSE [None]
  - BRADYCARDIA [None]
  - IRRITABILITY [None]
  - HYPOAESTHESIA [None]
  - DEATH [None]
  - CARDIAC ARREST [None]
  - RESPIRATORY ARREST [None]
  - INTENTIONAL DRUG MISUSE [None]
  - VERTIGO [None]
